FAERS Safety Report 5044544-0 (Version None)
Quarter: 2006Q2

REPORT INFORMATION
  Report Type: 
  Country: None (occurrence: None)
  Receive Date: 20060629
  Receipt Date: 20060616
  Transmission Date: 20061013
  Serious: Yes (Hospitalization, Other)
  Sender: FDA-Public Use
  Company Number: 2006052913

PATIENT
  Age: 30 Year
  Sex: Male
  Weight: 76 kg

DRUGS (3)
  1. SUTENT [Suspect]
     Indication: GASTROINTESTINAL STROMAL TUMOUR
     Dosage: 50 MG (50 MG, 1 IN 1 D), ORAL
     Route: 048
     Dates: start: 20060329, end: 20060409
  2. RANITAL (RANITIDINE) [Concomitant]
  3. CITALOPRAM HYDROBROMIDE [Concomitant]

REACTIONS (4)
  - ANAEMIA [None]
  - COAGULOPATHY [None]
  - FATIGUE [None]
  - MALNUTRITION [None]
